FAERS Safety Report 17026823 (Version 2)
Quarter: 2020Q4

REPORT INFORMATION
  Report Type: Spontaneous
  Country: FR (occurrence: FR)
  Receive Date: 20191113
  Receipt Date: 20201116
  Transmission Date: 20210113
  Serious: Yes (Hospitalization, Other)
  Sender: FDA-Public Use
  Company Number: FR-PFIZER INC-2019483744

PATIENT
  Age: 34 Year
  Sex: Male
  Weight: 44 kg

DRUGS (2)
  1. ZITHROMAX [Suspect]
     Active Substance: AZITHROMYCIN DIHYDRATE
     Indication: CRYPTOSPORIDIOSIS INFECTION
     Dosage: 500 MG, DAILY
     Route: 048
     Dates: start: 20190918, end: 20191011
  2. PROGRAF [Concomitant]
     Active Substance: TACROLIMUS
     Indication: IMMUNOSUPPRESSANT DRUG THERAPY
     Dosage: UNK

REACTIONS (4)
  - Off label use [Unknown]
  - Cholestasis [Not Recovered/Not Resolved]
  - Condition aggravated [Recovered/Resolved]
  - Hepatocellular injury [Recovered/Resolved]

NARRATIVE: CASE EVENT DATE: 20190918
